FAERS Safety Report 6309348-7 (Version None)
Quarter: 2009Q3

REPORT INFORMATION
  Report Type: 
  Country: None (occurrence: None)
  Receive Date: 20090811
  Receipt Date: 20090521
  Transmission Date: 20100115
  Serious: No
  Sender: FDA-Public Use
  Company Number: 1000006407

PATIENT
  Age: 55 Year
  Sex: Female

DRUGS (11)
  1. SAVELLA [Suspect]
     Indication: FIBROMYALGIA
     Dosage: 12.5 MG (12.5 MG,1 IN 1 D),ORAL;  25 MG (12.5 MG, 2 IN 1 D),ORAL; 50 MG (25 MG, 2 IN 1 D),ORAL
     Route: 048
     Dates: start: 20090514, end: 20090514
  2. SAVELLA [Suspect]
     Indication: FIBROMYALGIA
     Dosage: 12.5 MG (12.5 MG,1 IN 1 D),ORAL;  25 MG (12.5 MG, 2 IN 1 D),ORAL; 50 MG (25 MG, 2 IN 1 D),ORAL
     Route: 048
     Dates: start: 20090515, end: 20090516
  3. SAVELLA [Suspect]
     Indication: FIBROMYALGIA
     Dosage: 12.5 MG (12.5 MG,1 IN 1 D),ORAL;  25 MG (12.5 MG, 2 IN 1 D),ORAL; 50 MG (25 MG, 2 IN 1 D),ORAL
     Route: 048
     Dates: start: 20090517
  4. TRAZODONE [Concomitant]
  5. RESTORIL [Concomitant]
  6. METHADONE HCL [Concomitant]
  7. REGLAN [Concomitant]
  8. CARAFATE [Concomitant]
  9. LASIX [Concomitant]
  10. BACLOFEN [Concomitant]
  11. PROTONIX [Concomitant]

REACTIONS (2)
  - CHEST PAIN [None]
  - NAUSEA [None]
